FAERS Safety Report 6590977-0 (Version None)
Quarter: 2010Q1

REPORT INFORMATION
  Report Type: 
  Country: None (occurrence: None)
  Receive Date: 20100219
  Receipt Date: 20100209
  Transmission Date: 20100710
  Serious: Yes (Hospitalization)
  Sender: FDA-Public Use
  Company Number: GB-NOVOPROD-304236

PATIENT
  Sex: Male

DRUGS (1)
  1. NOVOMIX 30 [Suspect]
     Indication: TYPE 2 DIABETES MELLITUS
     Dosage: 15 IU, BID
     Route: 058

REACTIONS (2)
  - GASTROINTESTINAL DISORDER [None]
  - INTESTINAL OBSTRUCTION [None]
